FAERS Safety Report 21674995 (Version 1)
Quarter: 2022Q4

REPORT INFORMATION
  Report Type: Spontaneous
  Country: US (occurrence: US)
  Receive Date: 20221202
  Receipt Date: 20221202
  Transmission Date: 20230113
  Serious: Yes (Other)
  Sender: FDA-Public Use
  Company Number: US-SANOFI-01387834

PATIENT
  Sex: Female

DRUGS (4)
  1. PLAVIX [Suspect]
     Active Substance: CLOPIDOGREL BISULFATE
  2. ASPIRIN [Suspect]
     Active Substance: ASPIRIN
     Dosage: 81MG
  3. ELIQUIS [Concomitant]
     Active Substance: APIXABAN
  4. IBUPROFEN [Concomitant]
     Active Substance: IBUPROFEN

REACTIONS (7)
  - Necrosis [Unknown]
  - Atrial fibrillation [Unknown]
  - Diverticulum [Unknown]
  - Cardiac disorder [Unknown]
  - Abdominal discomfort [Unknown]
  - Condition aggravated [Unknown]
  - Hip surgery [Unknown]
